FAERS Safety Report 5849193-X (Version None)
Quarter: 2008Q3

REPORT INFORMATION
  Report Type: 
  Country: None (occurrence: None)
  Receive Date: 20080818
  Receipt Date: 20080818
  Transmission Date: 20090109
  Serious: Yes (Disabling, Other)
  Sender: FDA-Public Use
  Company Number: None

PATIENT
  Age: 59 Year
  Sex: Male
  Weight: 92.9874 kg

DRUGS (1)
  1. AVELOX [Suspect]
     Indication: SINUSITIS
     Dosage: 400MG  QDAY PO. 21 DAYS
     Route: 048
     Dates: start: 20080214, end: 20080307

REACTIONS (2)
  - PHOTOSENSITIVITY REACTION [None]
  - TENDONITIS [None]
